FAERS Safety Report 22181180 (Version 1)
Quarter: 2023Q2

REPORT INFORMATION
  Report Type: Spontaneous
  Country: US (occurrence: None)
  Receive Date: 20230405
  Receipt Date: 20230405
  Transmission Date: 20230722
  Serious: Yes (Other)
  Sender: FDA-Public Use
  Company Number: None

PATIENT
  Age: 10 Year
  Sex: Male
  Weight: 43.2 kg

DRUGS (1)
  1. SINGULAIR [Suspect]
     Active Substance: MONTELUKAST SODIUM
     Indication: Respiratory tract congestion
     Dates: start: 20230308, end: 20230329

REACTIONS (7)
  - Sleep terror [None]
  - Mood swings [None]
  - Depressed mood [None]
  - Anger [None]
  - Insomnia [None]
  - Decreased appetite [None]
  - Product communication issue [None]

NARRATIVE: CASE EVENT DATE: 20230401
